FAERS Safety Report 8493843-9 (Version None)
Quarter: 2012Q3

REPORT INFORMATION
  Report Type: 
  Country: None (occurrence: None)
  Receive Date: 20120706
  Receipt Date: 20120702
  Transmission Date: 20120928
  Serious: Yes (Other)
  Sender: FDA-Public Use
  Company Number: PHHY2012JP056645

PATIENT
  Age: 78 Year
  Sex: Female

DRUGS (5)
  1. RIFAMPICIN [Suspect]
     Indication: MENINGITIS TUBERCULOUS
     Dosage: 450 MG, UNK
  2. ETHAMBUTOL HYDROCHLORIDE [Suspect]
     Indication: MENINGITIS TUBERCULOUS
     Dosage: 500 MG, UNK
  3. PREDNISOLONE [Suspect]
     Indication: MENINGITIS TUBERCULOUS
     Dosage: 40 MG, UNK
  4. ISONIAZID [Suspect]
     Indication: MENINGITIS TUBERCULOUS
     Dosage: 200 MG, UNK
  5. PYRAZINAMIDE [Suspect]
     Indication: MENINGITIS TUBERCULOUS
     Dosage: 1000 MG, UNK

REACTIONS (2)
  - DIZZINESS [None]
  - CEREBRAL INFARCTION [None]
